FAERS Safety Report 15108246 (Version 1)
Quarter: 2018Q3

REPORT INFORMATION
  Report Type: Spontaneous
  Country: DE (occurrence: DE)
  Receive Date: 20180705
  Receipt Date: 20180705
  Transmission Date: 20181010
  Serious: Yes (Other)
  Sender: FDA-Public Use
  Company Number: DE-SUN PHARMACEUTICAL INDUSTRIES LTD-2018RR-177421

PATIENT
  Age: 39 Year
  Sex: Female
  Weight: 50 kg

DRUGS (2)
  1. CORTISON [Suspect]
     Active Substance: CORTISONE ACETATE
     Indication: PRODUCT USED FOR UNKNOWN INDICATION
     Dosage: ()
     Route: 065
     Dates: start: 20180321
  2. CIPROFLOXACIN. [Suspect]
     Active Substance: CIPROFLOXACIN
     Indication: PARANASAL SINUS DISCOMFORT
     Dosage: 3X1
     Route: 048
     Dates: start: 20180320, end: 20180324

REACTIONS (24)
  - Hepatic enzyme increased [Unknown]
  - Palpitations [Recovered/Resolved]
  - Sleep disorder [Unknown]
  - Adverse drug reaction [Unknown]
  - Crying [Recovered/Resolved]
  - Unresponsive to stimuli [Unknown]
  - Impaired work ability [Unknown]
  - Dysgeusia [Recovered/Resolved]
  - Immune system disorder [Recovered/Resolved]
  - Dyspnoea [Recovered/Resolved]
  - Fatigue [Unknown]
  - Panic attack [Recovered/Resolved]
  - Asthenia [Unknown]
  - Aggression [Unknown]
  - Headache [Recovered/Resolved]
  - Muscular weakness [Recovered/Resolved]
  - Depression [Recovered/Resolved]
  - Anxiety [Unknown]
  - Decreased appetite [Unknown]
  - Cough [Recovered/Resolved]
  - Disturbance in attention [Not Recovered/Not Resolved]
  - Nausea [Recovered/Resolved]
  - Dizziness [Unknown]
  - Ageusia [Recovered/Resolved]

NARRATIVE: CASE EVENT DATE: 20180225
